FAERS Safety Report 4422486-9 (Version None)
Quarter: 2004Q3

REPORT INFORMATION
  Report Type: 
  Country: None (occurrence: None)
  Receive Date: 20040810
  Receipt Date: 20040623
  Transmission Date: 20050211
  Serious: Yes (Death, Other)
  Sender: FDA-Public Use
  Company Number: PHBS2004TW08559

PATIENT
  Age: 31 Year
  Sex: Male
  Weight: 91 kg

DRUGS (4)
  1. CLOZARIL [Suspect]
     Indication: SCHIZOPHRENIA
     Dosage: 500 MG/D
     Route: 048
     Dates: start: 20040615
  2. HALOPERIDOL [Concomitant]
     Dosage: 10 MG/D
     Route: 065
     Dates: start: 20040301
  3. HALOPERIDOL [Concomitant]
     Dosage: 15 MG/D
     Route: 065
  4. ATIVAN [Concomitant]
     Indication: AGITATION
     Dosage: 1.5 MG/D
     Route: 065

REACTIONS (4)
  - ARRHYTHMIA [None]
  - CIRCULATORY COLLAPSE [None]
  - RESPIRATORY ARREST [None]
  - SOMNOLENCE [None]
